FAERS Safety Report 9256784 (Version 1)
Quarter: 2013Q2

REPORT INFORMATION
  Report Type: Spontaneous
  Country: US (occurrence: None)
  Receive Date: 20130423
  Receipt Date: 20130423
  Transmission Date: 20140414
  Serious: No
  Sender: FDA-Public Use
  Company Number: None

PATIENT
  Age: 7 Year
  Sex: Female
  Weight: 22.68 kg

DRUGS (1)
  1. ECONAZOLE NITRATE [Suspect]
     Indication: TINEA INFECTION
     Dosage: APPLY TWICE A DAY  TOP
     Route: 061
     Dates: start: 20130420, end: 20130420

REACTIONS (1)
  - Chemical injury [None]
